FAERS Safety Report 22129039 (Version 2)
Quarter: 2023Q4

REPORT INFORMATION
  Report Type: Spontaneous
  Country: GE (occurrence: GE)
  Receive Date: 20230323
  Receipt Date: 20231227
  Transmission Date: 20240110
  Serious: Yes (Other)
  Sender: FDA-Public Use
  Company Number: US-ALKEM LABORATORIES LIMITED-US-ALKEM-2022-14364

PATIENT
  Age: 20 Month
  Sex: Female

DRUGS (2)
  1. VIGABATRIN [Suspect]
     Active Substance: VIGABATRIN
     Indication: Infantile spasms
     Dosage: 150 MILLIGRAM/KILOGRAM, QD (PER DAY)
     Route: 065
  2. PREDNISONE [Concomitant]
     Active Substance: PREDNISONE
     Indication: Infantile spasms
     Dosage: 8 MILLIGRAM/KILOGRAM, QD (PER DAY)
     Route: 065

REACTIONS (5)
  - Encephalopathy [Recovering/Resolving]
  - Toxicity to various agents [Unknown]
  - Hypotonia [Recovering/Resolving]
  - Hyporeflexia [Recovering/Resolving]
  - Magnetic resonance imaging head abnormal [Recovering/Resolving]
